FAERS Safety Report 24834301 (Version 1)
Quarter: 2025Q1

REPORT INFORMATION
  Report Type: Spontaneous
  Country: US (occurrence: US)
  Receive Date: 20250113
  Receipt Date: 20250113
  Transmission Date: 20250408
  Serious: Yes (Death, Other)
  Sender: AMGEN
  Company Number: US-AMGEN-USASP2025003122

PATIENT

DRUGS (2)
  1. PREDNISONE [Suspect]
     Active Substance: PREDNISONE
     Indication: Immunosuppressant drug therapy
     Route: 065
  2. PROLIA [Suspect]
     Active Substance: DENOSUMAB
     Indication: Immunosuppressant drug therapy
     Route: 065

REACTIONS (14)
  - Death [Fatal]
  - Malignant neoplasm progression [Fatal]
  - Lung disorder [Fatal]
  - Shock haemorrhagic [Recovered/Resolved]
  - Gastrointestinal haemorrhage [Unknown]
  - Hepatic necrosis [Unknown]
  - Portal vein thrombosis [Unknown]
  - Biliary-vascular fistula [Unknown]
  - Vascular pseudoaneurysm ruptured [Unknown]
  - Hepatic haematoma [Unknown]
  - Fall [Unknown]
  - Arteriovenous fistula [Unknown]
  - Infection [Unknown]
  - Off label use [Unknown]
